FAERS Safety Report 15779915 (Version 1)
Quarter: 2019Q1

REPORT INFORMATION
  Report Type: Spontaneous
  Country: NL (occurrence: NL)
  Receive Date: 20190102
  Receipt Date: 20190102
  Transmission Date: 20190417
  Serious: Yes (Hospitalization)
  Sender: FDA-Public Use
  Company Number: NL-TEVA-2018-NL-993046

PATIENT
  Age: 48 Year
  Sex: Female
  Weight: 57 kg

DRUGS (1)
  1. NITROFURANTOINE CAPSULE 50MGNITROFURANTOINE CAPSULE 50MG / NITROFU [Suspect]
     Active Substance: NITROFURANTOIN
     Indication: URINARY TRACT INFECTION
     Dosage: 50MG
     Dates: start: 20171005, end: 20171010

REACTIONS (7)
  - Dyspnoea [Recovered/Resolved]
  - Diaphragmalgia [Recovering/Resolving]
  - Rash papular [Recovering/Resolving]
  - Palpitations [Recovering/Resolving]
  - Respiratory rate increased [Recovering/Resolving]
  - Cough [Recovered/Resolved]
  - Headache [Recovered/Resolved]

NARRATIVE: CASE EVENT DATE: 201710
